FAERS Safety Report 9244532 (Version 1)
Quarter: 2013Q1

REPORT INFORMATION
  Report Type: Spontaneous
  Country: US (occurrence: None)
  Receive Date: 20121123
  Receipt Date: 20121123
  Transmission Date: 20140127
  Serious: No
  Sender: FDA-Public Use
  Company Number: 360797

PATIENT
  Sex: Female

DRUGS (1)
  1. VICTOZA [Suspect]
     Dosage: 1.2 MG, QD , SUBCUTANEOUS
     Route: 058
     Dates: start: 2011

REACTIONS (4)
  - Swelling [None]
  - Vulvovaginal pruritus [None]
  - Urticaria [None]
  - Pruritus [None]
